FAERS Safety Report 21579698 (Version 3)
Quarter: 2023Q2

REPORT INFORMATION
  Report Type: Report from Study
  Country: US (occurrence: US)
  Receive Date: 20221110
  Receipt Date: 20230511
  Transmission Date: 20230721
  Serious: Yes (Other)
  Sender: FDA-Public Use
  Company Number: US-TAKEDA-2022TUS083710

PATIENT
  Sex: Female
  Weight: 89.342 kg

DRUGS (3)
  1. BRIGATINIB [Suspect]
     Active Substance: BRIGATINIB
     Indication: Lung neoplasm malignant
     Dosage: 90 MILLIGRAM, BID
     Route: 048
     Dates: start: 20221030
  2. BRIGATINIB [Suspect]
     Active Substance: BRIGATINIB
     Dosage: 120 MILLIGRAM, QD
     Route: 048
  3. BRIGATINIB [Suspect]
     Active Substance: BRIGATINIB
     Dosage: 120 MILLIGRAM, QD
     Route: 048

REACTIONS (7)
  - Angina pectoris [Unknown]
  - Nasopharyngitis [Unknown]
  - Nausea [Unknown]
  - Cough [Unknown]
  - Headache [Recovered/Resolved]
  - Diarrhoea [Unknown]
  - Dyspnoea [Unknown]
